FAERS Safety Report 7980012-1 (Version None)
Quarter: 2011Q4

REPORT INFORMATION
  Report Type: 
  Country: None (occurrence: None)
  Receive Date: 20111214
  Receipt Date: 20111208
  Transmission Date: 20120403
  Serious: Yes (Hospitalization)
  Sender: FDA-Public Use
  Company Number: PHHY2011SE107000

PATIENT
  Sex: Male

DRUGS (11)
  1. PIPERACILLIN AND TAZOBACTAM [Concomitant]
     Dosage: UNK UKN, UNK
  2. PREDNISOLONE [Concomitant]
     Dosage: UNK UKN, UNK
  3. NEORAL [Concomitant]
     Dosage: UNK UKN, UNK
  4. OMEPRAZOLE [Concomitant]
     Dosage: UNK UKN, UNK
  5. CALCICHEW-D3 [Concomitant]
     Dosage: UNK UKN, UNK
  6. IMURAN [Concomitant]
     Dosage: UNK UKN, UNK
  7. BISOPROLOL FUMARATE [Concomitant]
     Dosage: UNK UKN, UNK
  8. ZOLPIDEM [Concomitant]
     Dosage: UNK UKN, UNK
  9. FUROSEMIDE [Concomitant]
     Dosage: UNK UKN, UNK
  10. TACROLIMUS [Concomitant]
     Dosage: UNK UKN, UNK
  11. ACLASTA [Suspect]
     Indication: OSTEOPOROSIS
     Dosage: 5 MG, UNK
     Route: 042

REACTIONS (3)
  - DERMATITIS [None]
  - RASH [None]
  - PATHOLOGICAL FRACTURE [None]
